FAERS Safety Report 5478312-2 (Version None)
Quarter: 2007Q4

REPORT INFORMATION
  Report Type: 
  Country: None (occurrence: None)
  Receive Date: 20071005
  Receipt Date: 20070926
  Transmission Date: 20080405
  Serious: Yes (Other)
  Sender: FDA-Public Use
  Company Number: HQWYE331326SEP07

PATIENT
  Sex: Female

DRUGS (14)
  1. TYGACIL [Suspect]
     Route: 042
     Dates: start: 20070921, end: 20070926
  2. PROTONIX [Suspect]
     Route: 042
  3. LOVENOX [Suspect]
  4. ASPIRIN [Suspect]
  5. FLAGYL [Concomitant]
  6. MEDROL [Concomitant]
  7. PROCRIT [Concomitant]
  8. NORVASC [Concomitant]
  9. MAG-OX [Concomitant]
  10. DIFLUCAN [Concomitant]
  11. POTASSIUM CHLORIDE [Concomitant]
  12. COREG [Concomitant]
  13. MERREM [Suspect]
  14. LEVOTHYROXINE SODIUM [Concomitant]

REACTIONS (5)
  - DIARRHOEA [None]
  - PYREXIA [None]
  - RENAL FAILURE [None]
  - THROMBOCYTOPENIA [None]
  - WHITE BLOOD CELL COUNT INCREASED [None]
